FAERS Safety Report 15397290 (Version 2)
Quarter: 2018Q4

REPORT INFORMATION
  Report Type: Report from Study
  Country: US (occurrence: US)
  Receive Date: 20180918
  Receipt Date: 20181228
  Transmission Date: 20190204
  Serious: Yes (Hospitalization)
  Sender: FDA-Public Use
  Company Number: US-TAIHO ONCOLOGY  INC-EU-2018-01414

PATIENT
  Age: 53 Year
  Sex: Male
  Weight: 79.45 kg

DRUGS (10)
  1. LONSURF [Suspect]
     Active Substance: TIPIRACIL HYDROCHLORIDE\TRIFLURIDINE
     Indication: COLON CANCER
     Dosage: 2 OR 3 CYCLES COMPLETED, LAST CYCLE UNKNOWN
     Route: 048
     Dates: start: 20180323, end: 20181221
  2. MORPHINE SUL [Concomitant]
     Active Substance: MORPHINE SULFATE
  3. ACETAMINOPHIN [Concomitant]
  4. FLUTICASONE. [Concomitant]
     Active Substance: FLUTICASONE
  5. MORPHINE SUL [Concomitant]
     Active Substance: MORPHINE SULFATE
  6. DOXYCYL HYC [Concomitant]
  7. FERROUS SULF [Concomitant]
     Active Substance: FERROUS SULFATE
  8. ONDANSETRON [Concomitant]
     Active Substance: ONDANSETRON
  9. CYCLOBENZAPR [Concomitant]
     Active Substance: CYCLOBENZAPRINE
  10. METHOCARBAM [Concomitant]
     Active Substance: METHOCARBAMOL

REACTIONS (2)
  - Urinary tract infection [Unknown]
  - Pain [Unknown]

NARRATIVE: CASE EVENT DATE: 20180907
